FAERS Safety Report 9159720 (Version 2)
Quarter: 2013Q2

REPORT INFORMATION
  Report Type: Spontaneous
  Country: US (occurrence: US)
  Receive Date: 20130313
  Receipt Date: 20130423
  Transmission Date: 20140414
  Serious: Yes (Hospitalization)
  Sender: FDA-Public Use
  Company Number: US-ELI_LILLY_AND_COMPANY-US201303001066

PATIENT
  Age: 82 Year
  Sex: Female

DRUGS (13)
  1. FORTEO [Suspect]
     Indication: OSTEOPOROSIS
     Dosage: 20 UG, QD
     Dates: start: 20130218
  2. HUMALOG [Concomitant]
  3. CILOSTAZOL [Concomitant]
     Dosage: 2 PER DAY
  4. CLOPIDOGREL [Concomitant]
     Dosage: 1, QD
  5. METOPROLOL [Concomitant]
     Dosage: 1, BID
  6. PRAVACHOL [Concomitant]
     Dosage: ONE
  7. FELODIPINE [Concomitant]
     Dosage: ONE
  8. CITRACAL [Concomitant]
     Dosage: FOUR
  9. MULTIVITAMIN [Concomitant]
     Dosage: ONE
  10. ECOTRIN [Concomitant]
     Dosage: 325 MG, QD
  11. PREDNISONE [Concomitant]
     Dosage: TWO
  12. LEVOTHYROXINE [Concomitant]
     Dosage: ONE
  13. LISINOPRIL [Concomitant]
     Dosage: ONE

REACTIONS (1)
  - Myocardial infarction [Recovering/Resolving]
